FAERS Safety Report 7608030-3 (Version None)
Quarter: 2011Q3

REPORT INFORMATION
  Report Type: 
  Country: None (occurrence: None)
  Receive Date: 20110714
  Receipt Date: 20110705
  Transmission Date: 20111222
  Serious: No
  Sender: FDA-Public Use
  Company Number: US-JNJFOC-20110703317

PATIENT
  Sex: Male
  Weight: 94.8 kg

DRUGS (16)
  1. ASPIRIN [Concomitant]
     Indication: PROPHYLAXIS
     Route: 065
  2. ANTICHOLESTEROL AGENT [Concomitant]
  3. TAMSULOSIN HCL [Concomitant]
     Indication: PROSTATIC DISORDER
  4. TOPAMAX [Concomitant]
     Indication: TREMOR
  5. ALBUTEROL SULFATE AUTOHALER [Concomitant]
     Indication: CHRONIC OBSTRUCTIVE PULMONARY DISEASE
  6. MOMETASONE FUROATE [Concomitant]
     Indication: CHRONIC OBSTRUCTIVE PULMONARY DISEASE
  7. INVEGA SUSTENNA [Suspect]
     Indication: SCHIZOAFFECTIVE DISORDER
     Route: 030
     Dates: start: 20110527, end: 20110527
  8. INVEGA SUSTENNA [Suspect]
     Route: 030
     Dates: start: 20110603, end: 20110603
  9. DEPAKOTE [Concomitant]
     Indication: SCHIZOAFFECTIVE DISORDER
     Route: 065
  10. POTASSIUM CHLORIDE [Concomitant]
  11. TIOTROPIUM BROMIDE [Concomitant]
     Indication: CHRONIC OBSTRUCTIVE PULMONARY DISEASE
  12. LEVOTHYROXINE [Concomitant]
     Indication: THYROID DISORDER
  13. VITAMIN D [Concomitant]
     Indication: NUTRITIONAL SUPPORT
  14. SEROQUEL [Concomitant]
     Indication: SCHIZOAFFECTIVE DISORDER
     Route: 065
  15. AMANTADINE HCL [Concomitant]
     Indication: TREMOR
  16. LASIX [Concomitant]

REACTIONS (1)
  - DYSKINESIA [None]
